FAERS Safety Report 12244581 (Version 1)
Quarter: 2016Q2

REPORT INFORMATION
  Report Type: Spontaneous
  Country: FR (occurrence: FR)
  Receive Date: 20160407
  Receipt Date: 20160407
  Transmission Date: 20160815
  Serious: Yes (Death, Disabling)
  Sender: FDA-Public Use
  Company Number: FR-HOSPIRA-3231946

PATIENT
  Age: 70 Year
  Sex: Female

DRUGS (4)
  1. GEMCITABINE HYDROCHLORIDE. [Suspect]
     Active Substance: GEMCITABINE HYDROCHLORIDE
     Indication: OVARIAN CANCER
     Route: 042
     Dates: start: 201501, end: 201506
  2. CARBOPLATIN. [Suspect]
     Active Substance: CARBOPLATIN
     Indication: OVARIAN CANCER
     Dosage: 3.2 AUC
     Route: 042
     Dates: start: 201501, end: 201506
  3. AVASTIN                            /00848101/ [Suspect]
     Active Substance: SIMVASTATIN
     Indication: OVARIAN CANCER
     Route: 042
     Dates: start: 201501, end: 20151019
  4. LIPANOR [Concomitant]
     Active Substance: CIPROFIBRATE
     Indication: PRODUCT USED FOR UNKNOWN INDICATION
     Dates: end: 201507

REACTIONS (3)
  - Arthralgia [Unknown]
  - Myalgia [Unknown]
  - Metastases to meninges [Fatal]

NARRATIVE: CASE EVENT DATE: 201508
